FAERS Safety Report 6337991-8 (Version None)
Quarter: 2009Q3

REPORT INFORMATION
  Report Type: 
  Country: None (occurrence: None)
  Receive Date: 20090902
  Receipt Date: 20090828
  Transmission Date: 20100115
  Serious: Yes (Hospitalization)
  Sender: FDA-Public Use
  Company Number: JP-BRISTOL-MYERS SQUIBB COMPANY-14760797

PATIENT
  Weight: 49 kg

DRUGS (2)
  1. CISPLATIN [Suspect]
     Indication: CERVIX CARCINOMA RECURRENT
     Dosage: CYCLE 1:16JUN09-16JUN09 CYCLE 3:28JUL09-28JUL09
     Route: 042
     Dates: start: 20090616, end: 20090728
  2. S-1 [Suspect]
     Indication: CERVIX CARCINOMA RECURRENT
     Dosage: CYCLE 1:16JUN09 TO 29JUN09 CYCLE 3:28JUL09 TO 10AUG09
     Route: 048
     Dates: start: 20090616, end: 20090810

REACTIONS (1)
  - THROMBOSIS [None]
